FAERS Safety Report 14190597 (Version 1)
Quarter: 2017Q4

REPORT INFORMATION
  Report Type: Spontaneous
  Country: US (occurrence: US)
  Receive Date: 20171114
  Receipt Date: 20171114
  Transmission Date: 20180321
  Serious: No
  Sender: FDA-Public Use
  Company Number: None

PATIENT
  Age: 68 Year
  Sex: Female
  Weight: 59.4 kg

DRUGS (5)
  1. CALCIUM [Concomitant]
     Active Substance: CALCIUM
  2. FLONASE [Suspect]
     Active Substance: FLUTICASONE PROPIONATE
     Indication: CHRONIC SINUSITIS
     Dosage: ?          QUANTITY:1 SPRAY(S);OTHER ROUTE:NASAL SPRAY?
     Dates: start: 20171101, end: 20171102
  3. MULTIPLE VITAMIN [Concomitant]
     Active Substance: VITAMINS
  4. PEPCID [Concomitant]
     Active Substance: FAMOTIDINE
  5. FLUTICASONE. [Concomitant]
     Active Substance: FLUTICASONE

REACTIONS (3)
  - Burning sensation [None]
  - Sinus congestion [None]
  - Epistaxis [None]

NARRATIVE: CASE EVENT DATE: 20171101
